FAERS Safety Report 9349193 (Version 1)
Quarter: 2013Q2

REPORT INFORMATION
  Report Type: Spontaneous
  Country: US (occurrence: US)
  Receive Date: 20130614
  Receipt Date: 20130614
  Transmission Date: 20140414
  Serious: Yes (Hospitalization)
  Sender: FDA-Public Use
  Company Number: US-GLAXOSMITHKLINE-A1026602A

PATIENT
  Age: 62 Year
  Sex: Female

DRUGS (2)
  1. NICODERM CQ 21MG [Suspect]
     Indication: EX-TOBACCO USER
     Dosage: 21MG UNKNOWN
     Route: 065
     Dates: start: 20130426
  2. NICODERM CQ CLEAR 14MG [Suspect]
     Indication: EX-TOBACCO USER
     Dosage: 14MG UNKNOWN
     Route: 065
     Dates: start: 201305

REACTIONS (6)
  - Dizziness [Not Recovered/Not Resolved]
  - Balance disorder [Not Recovered/Not Resolved]
  - Blood pressure fluctuation [Not Recovered/Not Resolved]
  - Sleep disorder [Not Recovered/Not Resolved]
  - Drug administration error [Unknown]
  - Adverse event [Unknown]
